FAERS Safety Report 6123657-6 (Version None)
Quarter: 2009Q1

REPORT INFORMATION
  Report Type: 
  Country: None (occurrence: None)
  Receive Date: 20090317
  Receipt Date: 20090305
  Transmission Date: 20090719
  Serious: Yes (Disabling, Other)
  Sender: FDA-Public Use
  Company Number: 2009AP000891

PATIENT
  Sex: Female

DRUGS (5)
  1. ALENDRONATE SODIUM [Suspect]
     Indication: OSTEOPOROSIS
     Dosage: 70 MG;PO
     Route: 048
     Dates: start: 20010711, end: 20081113
  2. BENDROFLUMETHIAZIDE (BENDROFLUMETHIAZIDE) [Concomitant]
  3. LOSARTAN POTASSIUM [Concomitant]
  4. PROPANOLOL (PROPANOLOL) [Concomitant]
  5. SIMVASTATIN [Concomitant]

REACTIONS (4)
  - CONDITION AGGRAVATED [None]
  - DIZZINESS [None]
  - MIGRAINE [None]
  - VISUAL IMPAIRMENT [None]
